FAERS Safety Report 7336603-4 (Version None)
Quarter: 2011Q1

REPORT INFORMATION
  Report Type: 
  Country: None (occurrence: None)
  Receive Date: 20110307
  Receipt Date: 20101230
  Transmission Date: 20110831
  Serious: No
  Sender: FDA-Public Use
  Company Number: US-BAYER-2011-001125

PATIENT
  Sex: Female
  Weight: 51.247 kg

DRUGS (2)
  1. ULTRAVIST 150 [Suspect]
     Dosage: 88 ML, ONCE
     Route: 042
     Dates: start: 20101230, end: 20101230
  2. ULTRAVIST 150 [Suspect]
     Indication: COMPUTERISED TOMOGRAM
     Dosage: UNK
     Route: 048
     Dates: start: 20101230, end: 20101230

REACTIONS (2)
  - NASAL CONGESTION [None]
  - SNEEZING [None]
